FAERS Safety Report 7403052-X (Version None)
Quarter: 2011Q2

REPORT INFORMATION
  Report Type: 
  Country: None (occurrence: None)
  Receive Date: 20110408
  Receipt Date: 20110224
  Transmission Date: 20111010
  Serious: No
  Sender: FDA-Public Use
  Company Number: US-NOVEN-11US001907

PATIENT
  Sex: Female
  Weight: 47.166 kg

DRUGS (2)
  1. FENTANYL [Suspect]
     Dosage: 50 UG, 2 PATCHES PER DAY
     Route: 062
     Dates: start: 19970101
  2. FENTANYL [Suspect]
     Indication: PRODUCT USED FOR UNKNOWN INDICATION
     Dosage: 100 UG, Q72HR
     Route: 062
     Dates: start: 19970101

REACTIONS (3)
  - DRUG ADMINISTRATION ERROR [None]
  - NERVOUSNESS [None]
  - PRODUCT QUALITY ISSUE [None]
